FAERS Safety Report 10385016 (Version 1)
Quarter: 2014Q3

REPORT INFORMATION
  Report Type: Spontaneous
  Country: US (occurrence: None)
  Receive Date: 20140813
  Receipt Date: 20140813
  Transmission Date: 20150326
  Serious: Yes (Disabling, Other)
  Sender: FDA-Public Use
  Company Number: None

PATIENT
  Age: 21 Year
  Sex: Male
  Weight: 65.77 kg

DRUGS (3)
  1. TAVANIC [Suspect]
     Active Substance: LEVOFLOXACIN
     Indication: URINARY TRACT INFECTION
     Dosage: 2 PILLS ONCE DAILY TAKEN BY MOUTH
     Route: 048
  2. TAVANIC [Suspect]
     Active Substance: LEVOFLOXACIN
     Indication: PROSTATITIS
     Dosage: 2 PILLS ONCE DAILY TAKEN BY MOUTH
     Route: 048
  3. CIPRO [Suspect]
     Active Substance: CIPROFLOXACIN HYDROCHLORIDE
     Indication: URINARY TRACT INFECTION

REACTIONS (4)
  - Hypoaesthesia [None]
  - Arthralgia [None]
  - Tendonitis [None]
  - Pain in extremity [None]

NARRATIVE: CASE EVENT DATE: 20140630
